FAERS Safety Report 8190796-8 (Version None)
Quarter: 2012Q1

REPORT INFORMATION
  Report Type: 
  Country: None (occurrence: None)
  Receive Date: 20120307
  Receipt Date: 20120301
  Transmission Date: 20120608
  Serious: Yes (Hospitalization)
  Sender: FDA-Public Use
  Company Number: AT-AMGEN-AUTCT2011052652

PATIENT
  Sex: Female

DRUGS (4)
  1. MAXI CAL [Concomitant]
     Dosage: 1000 MG, QD
     Route: 048
     Dates: start: 20010101
  2. EZETIMIBE [Concomitant]
     Dosage: UNK UNK, QD
     Route: 048
     Dates: start: 20081113
  3. DIOVAN HCT [Concomitant]
     Dosage: UNK UNK, QD
     Route: 048
     Dates: start: 20070601
  4. XGEVA [Suspect]
     Indication: OSTEOPOROSIS POSTMENOPAUSAL
     Dosage: 60 MG, Q6MO
     Route: 058
     Dates: start: 20041117, end: 20110526

REACTIONS (1)
  - CEREBROVASCULAR ACCIDENT [None]
